FAERS Safety Report 18228329 (Version 1)
Quarter: 2020Q3

REPORT INFORMATION
  Report Type: Spontaneous
  Country: US (occurrence: US)
  Receive Date: 20200903
  Receipt Date: 20200903
  Transmission Date: 20201103
  Serious: Yes (Hospitalization)
  Sender: FDA-Public Use
  Company Number: None

PATIENT
  Age: 69 Year
  Sex: Male
  Weight: 89 kg

DRUGS (1)
  1. ERTUGLIFLOZIN [Suspect]
     Active Substance: ERTUGLIFLOZIN
     Route: 048
     Dates: end: 20200824

REACTIONS (3)
  - Euglycaemic diabetic ketoacidosis [None]
  - Blood glucose increased [None]
  - Haematemesis [None]

NARRATIVE: CASE EVENT DATE: 20200824
